FAERS Safety Report 8134163-1 (Version None)
Quarter: 2012Q1

REPORT INFORMATION
  Report Type: 
  Country: None (occurrence: None)
  Receive Date: 20120207
  Receipt Date: 20120126
  Transmission Date: 20120608
  Serious: Yes (Death, Hospitalization)
  Sender: FDA-Public Use
  Company Number: 2012SP004175

PATIENT
  Age: 60 Year
  Sex: Female

DRUGS (1)
  1. POSACONAZOLE [Suspect]
     Indication: PROPHYLAXIS

REACTIONS (5)
  - LUNG INFILTRATION [None]
  - RENAL FAILURE [None]
  - FUNGAL INFECTION [None]
  - RESPIRATORY FAILURE [None]
  - HEPATIC FAILURE [None]
